FAERS Safety Report 12424165 (Version 2)
Quarter: 2016Q2

REPORT INFORMATION
  Report Type: Report from Study
  Country: US (occurrence: US)
  Receive Date: 20160601
  Receipt Date: 20160614
  Transmission Date: 20160815
  Serious: Yes (Hospitalization)
  Sender: FDA-Public Use
  Company Number: US-ASTELLAS-2016US020428

PATIENT
  Age: 78 Year
  Sex: Female

DRUGS (2)
  1. ERLOTINIB [Suspect]
     Active Substance: ERLOTINIB
     Indication: NON-SMALL CELL LUNG CANCER
     Route: 048
     Dates: start: 20160426
  2. AT13387 [Suspect]
     Active Substance: ONALESPIB
     Indication: NON-SMALL CELL LUNG CANCER
     Dosage: 150 MG/M2, OVER 1 HOUR ON DAYS 1, 8 AND 15
     Route: 042
     Dates: start: 20160426

REACTIONS (3)
  - Muscular weakness [Not Recovered/Not Resolved]
  - Diarrhoea [Recovered/Resolved]
  - Confusional state [Not Recovered/Not Resolved]

NARRATIVE: CASE EVENT DATE: 20160521
